FAERS Safety Report 23722971 (Version 1)
Quarter: 2024Q2

REPORT INFORMATION
  Report Type: Report from Study
  Country: US (occurrence: US)
  Receive Date: 20240409
  Receipt Date: 20240409
  Transmission Date: 20240715
  Serious: Yes (Other)
  Sender: FDA-Public Use
  Company Number: US-JNJFOC-20240402752

PATIENT
  Sex: Male

DRUGS (1)
  1. REMICADE [Suspect]
     Active Substance: INFLIXIMAB
     Indication: Crohn^s disease
     Route: 043

REACTIONS (5)
  - Renal cancer [Unknown]
  - Skin cancer [Unknown]
  - Urticaria [Unknown]
  - Hypersensitivity [Unknown]
  - Throat irritation [Unknown]
